FAERS Safety Report 18688391 (Version 1)
Quarter: 2020Q4

REPORT INFORMATION
  Report Type: Spontaneous
  Country: US (occurrence: US)
  Receive Date: 20201230
  Receipt Date: 20201230
  Transmission Date: 20210114
  Serious: Yes (Hospitalization)
  Sender: FDA-Public Use
  Company Number: None

PATIENT
  Age: 13 Year
  Sex: Female
  Weight: 73.8 kg

DRUGS (6)
  1. PREDNISOLONE. [Suspect]
     Active Substance: PREDNISOLONE
     Dates: end: 20191203
  2. ONCASPAR [Suspect]
     Active Substance: PEGASPARGASE
     Dates: end: 20191104
  3. METHOTREXATE. [Suspect]
     Active Substance: METHOTREXATE
     Dates: end: 20191128
  4. CYTARABINE. [Suspect]
     Active Substance: CYTARABINE
     Dates: end: 20191106
  5. VINCCRISTINE SULFATE [Concomitant]
     Dates: end: 20191128
  6. DUNORUBICIN [Suspect]
     Active Substance: DAUNORUBICIN HYDROCHLORIDE
     Dates: end: 20191128

REACTIONS (2)
  - Posterior reversible encephalopathy syndrome [None]
  - Catheter site infection [None]

NARRATIVE: CASE EVENT DATE: 20201204
